FAERS Safety Report 15938459 (Version 2)
Quarter: 2019Q3

REPORT INFORMATION
  Report Type: Report from Study
  Country: US (occurrence: US)
  Receive Date: 20190208
  Receipt Date: 20190701
  Transmission Date: 20191004
  Serious: Yes (Hospitalization)
  Sender: FDA-Public Use
  Company Number: US-EISAI MEDICAL RESEARCH-EC-2019-051580

PATIENT
  Age: 63 Year
  Sex: Female
  Weight: 129.4 kg

DRUGS (40)
  1. HYDROCHLOROTHIAZIDE. [Concomitant]
     Active Substance: HYDROCHLOROTHIAZIDE
  2. ATORVASTATIN [Concomitant]
     Active Substance: ATORVASTATIN
  3. SUVOREXANT. [Concomitant]
     Active Substance: SUVOREXANT
  4. INSULIN GLARGINE [Concomitant]
     Active Substance: INSULIN GLARGINE
  5. ACETAMINOPHEN. [Concomitant]
     Active Substance: ACETAMINOPHEN
  6. CYCLOSPORINE. [Concomitant]
     Active Substance: CYCLOSPORINE
  7. ESCITALOPRAM [Concomitant]
     Active Substance: ESCITALOPRAM OXALATE
  8. MOMETASON [Concomitant]
     Active Substance: MOMETASONE FUROATE
  9. PERI-COLACE [Concomitant]
     Active Substance: CASANTHRANOL\DOCUSATE SODIUM
  10. BUSPIRONE [Concomitant]
     Active Substance: BUSPIRONE HYDROCHLORIDE
  11. INSULIN LISPRO [Concomitant]
     Active Substance: INSULIN LISPRO
  12. OXYGEN. [Concomitant]
     Active Substance: OXYGEN
  13. SPIRONOLACTONE. [Concomitant]
     Active Substance: SPIRONOLACTONE
  14. ARTIFICIAL TEAR [Concomitant]
     Active Substance: LANOLIN\MINERAL OIL\PETROLATUM
  15. MIRALAX [Concomitant]
     Active Substance: POLYETHYLENE GLYCOL 3350
  16. ALBUTEROL SULFATE AND IPRATROPIUM BROMIDE [Concomitant]
     Active Substance: ALBUTEROL SULFATE\IPRATROPIUM BROMIDE
  17. ARICEPT [Suspect]
     Active Substance: DONEPEZIL HYDROCHLORIDE
     Indication: DEMENTIA ALZHEIMER^S TYPE
     Route: 048
     Dates: start: 20180227, end: 20180814
  18. LAMOTRIGINE. [Concomitant]
     Active Substance: LAMOTRIGINE
  19. MELATONIN [Concomitant]
     Active Substance: MELATONIN
  20. MUPIROCIN. [Concomitant]
     Active Substance: MUPIROCIN
  21. ONDANSETRON [Concomitant]
     Active Substance: ONDANSETRON
  22. TRAMADOL. [Concomitant]
     Active Substance: TRAMADOL
  23. ALBUTEROL. [Concomitant]
     Active Substance: ALBUTEROL
  24. VITAMIN D2 [Concomitant]
     Active Substance: ERGOCALCIFEROL
  25. GLUCAGON. [Concomitant]
     Active Substance: GLUCAGON
  26. NITROFURANTOIN. [Concomitant]
     Active Substance: NITROFURANTOIN
  27. NYSTATIN. [Concomitant]
     Active Substance: NYSTATIN
  28. SINUS RINSE [Concomitant]
     Active Substance: SODIUM BICARBONATE\SODIUM CHLORIDE
  29. SEROQUEL [Concomitant]
     Active Substance: QUETIAPINE FUMARATE
  30. PF-06425090; PLACEBO [Concomitant]
     Active Substance: INVESTIGATIONAL PRODUCT
  31. ASPIRIN. [Concomitant]
     Active Substance: ASPIRIN
  32. CARBAMAZEPINE. [Concomitant]
     Active Substance: CARBAMAZEPINE
  33. MIRTAZAPINE. [Concomitant]
     Active Substance: MIRTAZAPINE
  34. AMILORIDE [Concomitant]
     Active Substance: AMILORIDE
  35. METOLAZONE. [Concomitant]
     Active Substance: METOLAZONE
  36. SENNA [Concomitant]
     Active Substance: SENNA LEAF\SENNOSIDES\SENNOSIDES A AND B
  37. POTASSIUM CHLORIDE. [Concomitant]
     Active Substance: POTASSIUM CHLORIDE
  38. GABAPENTIN. [Concomitant]
     Active Substance: GABAPENTIN
  39. TOLTERODINE [Concomitant]
     Active Substance: TOLTERODINE
  40. TORSEMIDE. [Concomitant]
     Active Substance: TORSEMIDE

REACTIONS (1)
  - Loss of consciousness [Recovered/Resolved]

NARRATIVE: CASE EVENT DATE: 20180808
